FAERS Safety Report 21466489 (Version 1)
Quarter: 2022Q4

REPORT INFORMATION
  Report Type: Spontaneous
  Country: US (occurrence: None)
  Receive Date: 20221014
  Receipt Date: 20221014
  Transmission Date: 20230112
  Serious: Yes (Hospitalization)
  Sender: FDA-Public Use
  Company Number: None

PATIENT
  Age: 88 Year
  Sex: Female
  Weight: 55.34 kg

DRUGS (13)
  1. LENALIDOMIDE [Suspect]
     Active Substance: LENALIDOMIDE
     Indication: Myelodysplastic syndrome
     Dosage: 5 MG Q O D  ORAL- EVERY OTHER DAY?
     Route: 048
  2. ATORVASTATIN [Concomitant]
     Active Substance: ATORVASTATIN
  3. CEPHALEXIN [Concomitant]
     Active Substance: CEPHALEXIN
  4. CLONIDINE [Concomitant]
     Active Substance: CLONIDINE
  5. CLOPIDOGREL [Concomitant]
     Active Substance: CLOPIDOGREL BISULFATE
  6. FUROSEMIDE [Concomitant]
     Active Substance: FUROSEMIDE
  7. HYDRALAZINE [Concomitant]
     Active Substance: HYDRALAZINE HYDROCHLORIDE
  8. HYDROCHLOROTHIAZIDE [Concomitant]
     Active Substance: HYDROCHLOROTHIAZIDE
  9. MATZIM LA [Concomitant]
     Active Substance: DILTIAZEM HYDROCHLORIDE
  10. METOPROLOL [Concomitant]
     Active Substance: METOPROLOL
  11. Multivitamins/Fluoride (with ADE) [Concomitant]
  12. TRAMADOL [Concomitant]
     Active Substance: TRAMADOL
  13. VALSARTAN [Concomitant]
     Active Substance: VALSARTAN

REACTIONS (3)
  - Fall [None]
  - Joint injury [None]
  - Loss of consciousness [None]

NARRATIVE: CASE EVENT DATE: 20221004
